FAERS Safety Report 20716683 (Version 1)
Quarter: 2022Q2

REPORT INFORMATION
  Report Type: Spontaneous
  Country: US (occurrence: US)
  Receive Date: 20220416
  Receipt Date: 20220416
  Transmission Date: 20220721
  Serious: No
  Sender: FDA-Public Use
  Company Number: US-ALLERGAN-2205277US

PATIENT
  Sex: Female

DRUGS (5)
  1. LILETTA [Suspect]
     Active Substance: LEVONORGESTREL
     Indication: Contraception
     Dosage: 52 MG, SINGLE
     Route: 015
     Dates: start: 20211213, end: 20220208
  2. IRON [Concomitant]
     Active Substance: IRON
     Indication: Anaemia
  3. FIBER [Concomitant]
     Active Substance: PSYLLIUM HUSK
  4. VITAMINS [Concomitant]
     Active Substance: VITAMINS
  5. ATOMOXETINE [Concomitant]
     Active Substance: ATOMOXETINE
     Indication: Attention deficit hyperactivity disorder

REACTIONS (1)
  - Device expulsion [Recovered/Resolved]
